FAERS Safety Report 9924407 (Version 15)
Quarter: 2015Q3

REPORT INFORMATION
  Report Type: Spontaneous
  Country: US (occurrence: None)
  Receive Date: 20140220
  Receipt Date: 20150805
  Transmission Date: 20151125
  Serious: Yes (Hospitalization, Other)
  Sender: FDA-Public Use
  Company Number: DSU-2014-00302

PATIENT
  Age: 61 Year
  Sex: Male
  Weight: 70.3 kg

DRUGS (3)
  1. BENICAR HCT [Suspect]
     Active Substance: HYDROCHLOROTHIAZIDE\OLMESARTAN MEDOXOMIL
     Indication: HYPERTENSION
     Dosage: 40/12.5 MG
     Route: 048
     Dates: end: 2008
  2. COUMADIN [Concomitant]
     Active Substance: WARFARIN SODIUM
  3. BENICAR [Suspect]
     Active Substance: OLMESARTAN MEDOXOMIL
     Indication: HYPERTENSION
     Route: 048
     Dates: end: 201101

REACTIONS (88)
  - Device related infection [None]
  - Small intestine ulcer [None]
  - Asthenia [None]
  - Infection [None]
  - Urinary tract infection [None]
  - Decubitus ulcer [None]
  - Abscess [None]
  - Diverticulitis [None]
  - Hypophosphataemia [None]
  - Large intestinal ulcer [None]
  - Colitis microscopic [None]
  - Dizziness postural [None]
  - Blood pressure systolic increased [None]
  - Eczema [None]
  - Deep vein thrombosis [None]
  - Enterocolitis [None]
  - Cataract [None]
  - Bradycardia [None]
  - Hypotension [None]
  - Herpes simplex [None]
  - Dehydration [None]
  - Weight decreased [None]
  - Compression fracture [None]
  - Spinal fracture [None]
  - Dysstasia [None]
  - Chills [None]
  - Oesophagitis [None]
  - Autoimmune disorder [None]
  - Dermatitis [None]
  - Spinal compression fracture [None]
  - Oropharyngeal candidiasis [None]
  - Osteoporosis [None]
  - Malabsorption [None]
  - Loss of consciousness [None]
  - Duodenitis [None]
  - Anaemia [None]
  - Device leakage [None]
  - Hyperhidrosis [None]
  - Angioedema [None]
  - Pancreatitis [None]
  - Drug hypersensitivity [None]
  - Metabolic acidosis [None]
  - Flatulence [None]
  - Malnutrition [None]
  - Nausea [None]
  - Hypokalaemia [None]
  - Lipase increased [None]
  - Pyrexia [None]
  - Hiccups [None]
  - Prostatic specific antigen increased [None]
  - Ileal ulcer [None]
  - Cardio-respiratory arrest [None]
  - Catheter site infection [None]
  - Diabetes mellitus [None]
  - Pneumoperitoneum [None]
  - Coronary artery disease [None]
  - Clostridium difficile infection [None]
  - Respiratory tract congestion [None]
  - Transaminases increased [None]
  - Syncope [None]
  - Sinus tachycardia [None]
  - Dysuria [None]
  - Rash [None]
  - Headache [None]
  - Mental impairment [None]
  - Musculoskeletal chest pain [None]
  - Ophthalmic herpes simplex [None]
  - Cytomegalovirus colitis [None]
  - Hypoalbuminaemia [None]
  - Diarrhoea [None]
  - Vomiting [None]
  - Multiple injuries [None]
  - Mental disorder [None]
  - Muscular weakness [None]
  - Gait disturbance [None]
  - Oesophageal candidiasis [None]
  - Arthritis [None]
  - Constipation [None]
  - Emotional distress [None]
  - Gastroenteritis [None]
  - Aspiration [None]
  - Respiratory disorder [None]
  - Wheezing [None]
  - Respiratory distress [None]
  - Enteritis [None]
  - Seborrhoea [None]
  - Sinusitis [None]
  - Vitamin D decreased [None]

NARRATIVE: CASE EVENT DATE: 2008
